FAERS Safety Report 8378349-X (Version None)
Quarter: 2012Q2

REPORT INFORMATION
  Report Type: 
  Country: None (occurrence: None)
  Receive Date: 20120522
  Receipt Date: 20120517
  Transmission Date: 20120825
  Serious: Yes (Other)
  Sender: FDA-Public Use
  Company Number: US-ELI_LILLY_AND_COMPANY-US201205007056

PATIENT
  Sex: Female

DRUGS (1)
  1. HUMALOG [Suspect]
     Indication: DIABETES MELLITUS
     Dosage: UNK, UNKNOWN

REACTIONS (6)
  - ABNORMAL SENSATION IN EYE [None]
  - ULCER [None]
  - OCULAR HYPERAEMIA [None]
  - FACIAL PAIN [None]
  - ERYTHEMA [None]
  - EYE PAIN [None]
